FAERS Safety Report 8575383 (Version 5)
Quarter: 2012Q4

REPORT INFORMATION
  Report Type: Report from Study
  Country: JP (occurrence: JP)
  Receive Date: 20120523
  Receipt Date: 20121109
  Transmission Date: 20130627
  Serious: Yes (Death, Hospitalization, Other)
  Sender: FDA-Public Use
  Company Number: JP-ASTELLAS-2012US004878

PATIENT
  Age: 51 Year
  Sex: Female

DRUGS (15)
  1. ERLOTINIB TABLET [Suspect]
     Indication: PANCREATIC CARCINOMA
     Dosage: 100 mg, UID/QD
     Route: 048
     Dates: start: 20120507, end: 20120511
  2. GEMCITABINE HYDROCHLORIDE [Suspect]
     Indication: PANCREATIC CARCINOMA
     Dosage: 1000 mg/m2, UID/QD
     Route: 041
     Dates: start: 20120507, end: 20120507
  3. WARFARIN [Suspect]
     Indication: PULMONARY THROMBOSIS
     Dosage: 2 mg, UID/QD
     Route: 048
     Dates: start: 20120430, end: 20120514
  4. INSULIN [Concomitant]
     Indication: DIABETES MELLITUS
     Dosage: UNK
     Route: 058
     Dates: start: 201204
  5. OXYCONTIN [Concomitant]
     Indication: PRODUCT USED FOR UNKNOWN INDICATION
     Dosage: 10 mg, UID/QD
     Route: 048
     Dates: start: 20120507, end: 20120514
  6. NOVAMIN                            /00391002/ [Concomitant]
     Indication: PRODUCT USED FOR UNKNOWN INDICATION
     Dosage: 15 mg, UID/QD
     Route: 048
     Dates: start: 20120507, end: 20120514
  7. METHYLCOBAL [Concomitant]
     Indication: PRODUCT USED FOR UNKNOWN INDICATION
     Dosage: 1500 ug, UID/QD
     Route: 048
     Dates: start: 20120416, end: 20120514
  8. PURSENIDE [Concomitant]
     Indication: PRODUCT USED FOR UNKNOWN INDICATION
     Dosage: 24 mg, UID/QD
     Route: 048
     Dates: start: 20120415, end: 20120514
  9. NOVORAPID [Concomitant]
     Indication: DIABETES MELLITUS
     Dosage: 12 IU, UID/QD
     Route: 058
     Dates: start: 20120412, end: 20120514
  10. LANTUS [Concomitant]
     Indication: DIABETES MELLITUS
     Dosage: 4 IU, UID/QD
     Route: 058
     Dates: start: 20120412, end: 20120514
  11. OLMETEC [Concomitant]
     Indication: HYPERTENSION
     Dosage: 20 mg, UID/QD
     Route: 048
     Dates: start: 20120410, end: 20120514
  12. MYONAL                             /00287502/ [Concomitant]
     Indication: PRODUCT USED FOR UNKNOWN INDICATION
     Dosage: 150 mg, UID/QD
     Route: 048
     Dates: start: 20120413, end: 20120514
  13. MAGNESIUM OXIDE [Concomitant]
     Indication: PRODUCT USED FOR UNKNOWN INDICATION
     Dosage: 2.01 g, UID/QD
     Route: 048
     Dates: start: 20120426, end: 20120514
  14. BROTIZOLAM [Concomitant]
     Indication: INSOMNIA
     Dosage: 0.25 mg, prn
     Route: 048
     Dates: start: 20120426, end: 20120514
  15. STADERM [Concomitant]
     Indication: PRODUCT USED FOR UNKNOWN INDICATION
     Dosage: UNK
     Route: 003
     Dates: start: 20120513, end: 20120514

REACTIONS (2)
  - Cerebral haemorrhage [Fatal]
  - Blood bilirubin increased [Unknown]
